FAERS Safety Report 7552900-1 (Version None)
Quarter: 2011Q2

REPORT INFORMATION
  Report Type: 
  Country: None (occurrence: None)
  Receive Date: 20110616
  Receipt Date: 20101105
  Transmission Date: 20111010
  Serious: No
  Sender: FDA-Public Use
  Company Number: US-ASTRAZENECA-2010SE53169

PATIENT
  Sex: Female

DRUGS (1)
  1. FASLODEX [Suspect]
     Indication: BREAST CANCER
     Route: 030
     Dates: start: 20100915

REACTIONS (5)
  - BLOOD TEST ABNORMAL [None]
  - NAUSEA [None]
  - MUSCLE SPASMS [None]
  - CONSTIPATION [None]
  - DIARRHOEA [None]
